FAERS Safety Report 6753714-2 (Version None)
Quarter: 2010Q2

REPORT INFORMATION
  Report Type: 
  Country: None (occurrence: None)
  Receive Date: 20100520
  Receipt Date: 20090521
  Transmission Date: 20101027
  Serious: Yes (Other)
  Sender: FDA-Public Use
  Company Number: 2009193722

PATIENT
  Age: 53 Year
  Sex: Female

DRUGS (6)
  1. PROVERA [Suspect]
     Indication: MENOPAUSAL SYMPTOMS
     Dosage: 2.5 MG, ORAL, 5 MG
     Route: 048
     Dates: start: 19941001, end: 19950701
  2. PROVERA [Suspect]
     Indication: MENOPAUSAL SYMPTOMS
     Dosage: 2.5 MG, ORAL, 5 MG
     Route: 048
     Dates: start: 19950701
  3. MEDROXYPROGESTERONE ACETATE [Suspect]
     Indication: MENOPAUSAL SYMPTOMS
     Dosage: 5 MG, ORAL
     Route: 048
     Dates: start: 19980201, end: 19990501
  4. PREMPRO [Suspect]
     Indication: MENOPAUSAL SYMPTOMS
     Dosage: 5 MG
     Dates: start: 19990611, end: 20000616
  5. PREMARIN [Suspect]
     Indication: MENOPAUSAL SYMPTOMS
     Dosage: 0.625 MG
     Dates: start: 19990215, end: 19990501
  6. ESTRATAB (ESTRADIOL ESTERIFIED) [Suspect]
     Indication: MENOPAUSAL SYMPTOMS
     Dosage: 0.625 MG
     Dates: start: 19941001, end: 19990201

REACTIONS (1)
  - BREAST CANCER [None]
